FAERS Safety Report 15829727 (Version 1)
Quarter: 2019Q1

REPORT INFORMATION
  Report Type: Spontaneous
  Country: US (occurrence: US)
  Receive Date: 20190115
  Receipt Date: 20190115
  Transmission Date: 20190417
  Serious: No
  Sender: FDA-Public Use
  Company Number: US-ALLERGAN-1850581US

PATIENT
  Sex: Female
  Weight: 151.2 kg

DRUGS (4)
  1. ASPIRIN. [Concomitant]
     Active Substance: ASPIRIN
     Indication: HEADACHE
     Dosage: UNK
  2. UNKNOWN EYE OINTMENT [Concomitant]
     Dosage: UNK, QHS
     Route: 047
  3. RESTASIS [Suspect]
     Active Substance: CYCLOSPORINE
     Indication: DRY EYE
     Dosage: 2 GTT, BID
     Route: 047
     Dates: start: 20180926
  4. 14 UNKNOWN MEDICATIONS [Concomitant]
     Dosage: UNK

REACTIONS (2)
  - Product dose omission [Unknown]
  - Product container issue [Unknown]
